FAERS Safety Report 6369749-8 (Version None)
Quarter: 2009Q3

REPORT INFORMATION
  Report Type: 
  Country: None (occurrence: None)
  Receive Date: 20090918
  Receipt Date: 20090901
  Transmission Date: 20100115
  Serious: Yes (Other)
  Sender: FDA-Public Use
  Company Number: JPI-P-005690

PATIENT
  Age: 57 Year
  Sex: Male
  Weight: 97.977 kg

DRUGS (7)
  1. XYREM [Suspect]
     Indication: INSOMNIA
     Dosage: 4.5 GM (2.25 GM, 2 IN 1 D), ORAL, 9 GM  (4.5 GM, 2 IN 1 D), ORAL
     Route: 048
     Dates: end: 20090801
  2. XYREM [Suspect]
     Indication: RAPID EYE MOVEMENTS SLEEP ABNORMAL
     Dosage: 4.5 GM (2.25 GM, 2 IN 1 D), ORAL, 9 GM  (4.5 GM, 2 IN 1 D), ORAL
     Route: 048
     Dates: end: 20090801
  3. XYREM [Suspect]
     Indication: INSOMNIA
     Dosage: 4.5 GM (2.25 GM, 2 IN 1 D), ORAL, 9 GM  (4.5 GM, 2 IN 1 D), ORAL
     Route: 048
     Dates: start: 20081001
  4. XYREM [Suspect]
     Indication: RAPID EYE MOVEMENTS SLEEP ABNORMAL
     Dosage: 4.5 GM (2.25 GM, 2 IN 1 D), ORAL, 9 GM  (4.5 GM, 2 IN 1 D), ORAL
     Route: 048
     Dates: start: 20081001
  5. MELATONIN [Concomitant]
  6. FLUOXETINE HCL [Concomitant]
  7. ACETYLSALICYLIC ACID [Concomitant]

REACTIONS (8)
  - AGITATION [None]
  - COMA [None]
  - DEPRESSED LEVEL OF CONSCIOUSNESS [None]
  - DIARRHOEA [None]
  - DISEASE PROGRESSION [None]
  - INSOMNIA [None]
  - RADIAL NERVE PALSY [None]
  - RESTLESSNESS [None]
